FAERS Safety Report 12081103 (Version 5)
Quarter: 2016Q4

REPORT INFORMATION
  Report Type: Spontaneous
  Country: JP (occurrence: JP)
  Receive Date: 20160216
  Receipt Date: 20161004
  Transmission Date: 20170206
  Serious: Yes (Hospitalization)
  Sender: FDA-Public Use
  Company Number: JP-JNJFOC-20160213450

PATIENT
  Age: 67 Year
  Sex: Male

DRUGS (1)
  1. USTEKINUMAB [Suspect]
     Active Substance: USTEKINUMAB
     Indication: PSORIASIS
     Route: 058
     Dates: start: 20110825, end: 20150609

REACTIONS (2)
  - Gastric cancer [Unknown]
  - Bile duct cancer [Unknown]

NARRATIVE: CASE EVENT DATE: 20160101
